FAERS Safety Report 14009783 (Version 1)
Quarter: 2017Q3

REPORT INFORMATION
  Report Type: Report from Study
  Country: CO (occurrence: CO)
  Receive Date: 20170925
  Receipt Date: 20170925
  Transmission Date: 20171128
  Serious: Yes (Life-Threatening, Hospitalization)
  Sender: FDA-Public Use
  Company Number: PHHY2017CO131218

PATIENT
  Age: 17 Year
  Sex: Female
  Weight: 34 kg

DRUGS (1)
  1. REVOLADE [Suspect]
     Active Substance: ELTROMBOPAG
     Indication: THROMBOCYTOPENIC PURPURA
     Dosage: 50 MG, QD
     Route: 048
     Dates: start: 20160917

REACTIONS (2)
  - Platelet count decreased [Recovering/Resolving]
  - Vaginal lesion [Unknown]

NARRATIVE: CASE EVENT DATE: 201708
